FAERS Safety Report 24585159 (Version 2)
Quarter: 2025Q1

REPORT INFORMATION
  Report Type: Spontaneous
  Country: US (occurrence: US)
  Receive Date: 20241106
  Receipt Date: 20250103
  Transmission Date: 20250408
  Serious: No
  Sender: TAIHO ONCOLOGY INC
  Company Number: US-TAIHOP-2024-010057

PATIENT
  Age: 7 Decade
  Sex: Female

DRUGS (3)
  1. LYTGOBI [Suspect]
     Active Substance: FUTIBATINIB
     Indication: Cholangiocarcinoma
     Dosage: FORM STRENGTH UNKNOWN.
     Route: 048
  2. LYTGOBI [Suspect]
     Active Substance: FUTIBATINIB
     Dosage: FORM STRENGTH UNKNOWN.
     Route: 048
  3. LYTGOBI [Suspect]
     Active Substance: FUTIBATINIB
     Dosage: FORM STRENGTH UNKNOWN.
     Route: 048

REACTIONS (1)
  - Stomatitis [Unknown]
